FAERS Safety Report 16167573 (Version 1)
Quarter: 2019Q2

REPORT INFORMATION
  Report Type: Spontaneous
  Country: US (occurrence: US)
  Receive Date: 20190408
  Receipt Date: 20190408
  Transmission Date: 20190711
  Serious: No
  Sender: FDA-Public Use
  Company Number: US-BIOGEN-2018BI00664183

PATIENT
  Age: 41 Year
  Sex: Female

DRUGS (25)
  1. TECFIDERA [Suspect]
     Active Substance: DIMETHYL FUMARATE
     Dosage: MAINTENANCE DOSE
     Route: 048
     Dates: start: 20190111
  2. ESOMEPRAZOLE SODIUM. [Concomitant]
     Active Substance: ESOMEPRAZOLE SODIUM
     Route: 050
  3. MIRALAX [Concomitant]
     Active Substance: POLYETHYLENE GLYCOL 3350
     Route: 050
  4. LITHIUM CARBONATE. [Concomitant]
     Active Substance: LITHIUM CARBONATE
     Route: 050
  5. CLONAZEPAM. [Concomitant]
     Active Substance: CLONAZEPAM
     Route: 050
  6. FISH OIL [Concomitant]
     Active Substance: FISH OIL
     Route: 050
  7. LISINPRIL [Concomitant]
     Route: 050
  8. TYLENOL [Concomitant]
     Active Substance: ACETAMINOPHEN
     Route: 050
  9. VITAMIN D3 [Concomitant]
     Active Substance: CHOLECALCIFEROL
     Route: 050
  10. EXCEDRINIL [Concomitant]
     Route: 050
  11. TECFIDERA [Suspect]
     Active Substance: DIMETHYL FUMARATE
     Indication: MULTIPLE SCLEROSIS
     Route: 050
     Dates: start: 20181119, end: 20181125
  12. ATORVASTATIN [Concomitant]
     Active Substance: ATORVASTATIN
     Route: 050
  13. CALCIUM [Concomitant]
     Active Substance: CALCIUM
     Route: 050
  14. LATUDA [Concomitant]
     Active Substance: LURASIDONE HYDROCHLORIDE
     Route: 050
  15. TECFIDERA [Suspect]
     Active Substance: DIMETHYL FUMARATE
     Route: 065
  16. METFORMIN HCL [Concomitant]
     Active Substance: METFORMIN HYDROCHLORIDE
     Route: 050
  17. PROAIR HFA [Concomitant]
     Active Substance: ALBUTEROL SULFATE
     Route: 050
  18. ZOLPIDEM TARTRATE. [Concomitant]
     Active Substance: ZOLPIDEM TARTRATE
     Route: 050
  19. GABAPENTIN. [Concomitant]
     Active Substance: GABAPENTIN
     Route: 050
  20. FLUTICASONE PROPIONATE. [Concomitant]
     Active Substance: FLUTICASONE PROPIONATE
     Route: 050
  21. BENZTROPINE MESYLATE. [Concomitant]
     Active Substance: BENZTROPINE MESYLATE
     Route: 050
  22. TECFIDERA [Suspect]
     Active Substance: DIMETHYL FUMARATE
     Dosage: TAKE 1 CAPSULE BY MOUTH TWICE A DAY
     Route: 050
     Dates: start: 20181126
  23. MULTI VITAMIN [Concomitant]
     Active Substance: VITAMINS
     Route: 050
  24. CALCIUM-MAGNESIUM-ZINC [Concomitant]
     Route: 050
  25. HALOPERIDOL. [Concomitant]
     Active Substance: HALOPERIDOL
     Route: 050

REACTIONS (7)
  - Abdominal pain [Recovered/Resolved with Sequelae]
  - Headache [Recovered/Resolved]
  - Abdominal discomfort [Recovered/Resolved]
  - Chromaturia [Recovered/Resolved]
  - Flushing [Recovered/Resolved]
  - Product dose omission [Unknown]
  - Abdominal pain upper [Recovered/Resolved]

NARRATIVE: CASE EVENT DATE: 20190111
